FAERS Safety Report 14904253 (Version 1)
Quarter: 2018Q2

REPORT INFORMATION
  Report Type: Spontaneous
  Country: US (occurrence: US)
  Receive Date: 20180516
  Receipt Date: 20180516
  Transmission Date: 20180711
  Serious: Yes (Hospitalization, Other)
  Sender: FDA-Public Use
  Company Number: US-VISTAPHARM, INC.-VER201805-000644

PATIENT
  Sex: Male

DRUGS (6)
  1. SIROLIMUS. [Suspect]
     Active Substance: SIROLIMUS
     Indication: INTRAVASCULAR PAPILLARY ENDOTHELIAL HYPERPLASIA
     Dosage: WITH A TROUGH GOAL OF 8 TO 15 NG/ML
  2. PREDNISOLONE. [Suspect]
     Active Substance: PREDNISOLONE
  3. PREDNISOLONE. [Suspect]
     Active Substance: PREDNISOLONE
     Indication: INTRAVASCULAR PAPILLARY ENDOTHELIAL HYPERPLASIA
  4. PROPRANOLOL [Concomitant]
     Active Substance: PROPRANOLOL HYDROCHLORIDE
     Indication: INTRAVASCULAR PAPILLARY ENDOTHELIAL HYPERPLASIA
  5. VINCRISTINE [Concomitant]
     Active Substance: VINCRISTINE
     Indication: INTRAVASCULAR PAPILLARY ENDOTHELIAL HYPERPLASIA
  6. SIROLIMUS. [Suspect]
     Active Substance: SIROLIMUS

REACTIONS (2)
  - Pneumocystis jirovecii pneumonia [Unknown]
  - Drug effect incomplete [Unknown]
